FAERS Safety Report 17560250 (Version 1)
Quarter: 2020Q1

REPORT INFORMATION
  Report Type: Spontaneous
  Country: GB (occurrence: GB)
  Receive Date: 20200319
  Receipt Date: 20200319
  Transmission Date: 20200409
  Serious: Yes (Other)
  Sender: FDA-Public Use
  Company Number: NVSC2020GB078178

PATIENT
  Age: 60 Year
  Sex: Male

DRUGS (12)
  1. SPIRONOLACTONE. [Suspect]
     Active Substance: SPIRONOLACTONE
     Indication: ANGINA PECTORIS
  2. FRUSEMIDE [Suspect]
     Active Substance: FUROSEMIDE
     Indication: MYOCARDIAL INFARCTION
  3. ISOSORBIDE DINITRATE. [Suspect]
     Active Substance: ISOSORBIDE DINITRATE
     Indication: ANGINA PECTORIS
  4. ISOSORBIDE DINITRATE. [Suspect]
     Active Substance: ISOSORBIDE DINITRATE
     Indication: MYOCARDIAL INFARCTION
  5. NIFEDIPINE. [Suspect]
     Active Substance: NIFEDIPINE
     Indication: ANGINA PECTORIS
  6. SPIRONOLACTONE. [Suspect]
     Active Substance: SPIRONOLACTONE
     Indication: MYOCARDIAL INFARCTION
     Dosage: 100 MG
     Route: 065
  7. ISOSORBIDE DINITRATE. [Suspect]
     Active Substance: ISOSORBIDE DINITRATE
     Indication: ACUTE MYOCARDIAL INFARCTION
     Dosage: 20 MG, TID
     Route: 065
  8. ATENOLOL. [Suspect]
     Active Substance: ATENOLOL
     Indication: ANGINA PECTORIS
     Dosage: 100 MG
     Route: 065
  9. FRUSEMIDE [Suspect]
     Active Substance: FUROSEMIDE
     Indication: ANGINA PECTORIS
     Dosage: 40 MG, UNK
     Route: 065
  10. NIFEDIPINE. [Suspect]
     Active Substance: NIFEDIPINE
     Indication: MYOCARDIAL INFARCTION
     Dosage: 20 MG, TID
     Route: 065
  11. ATENOLOL. [Suspect]
     Active Substance: ATENOLOL
     Indication: MYOCARDIAL INFARCTION
  12. METOPROLOL. [Suspect]
     Active Substance: METOPROLOL
     Indication: ACUTE MYOCARDIAL INFARCTION
     Dosage: UNK (FROM ONE YEAR BEFORE)
     Route: 065

REACTIONS (3)
  - Oedema peripheral [Unknown]
  - Cardiac failure congestive [Recovered/Resolved]
  - Pulmonary oedema [Unknown]
